FAERS Safety Report 7878471-8 (Version None)
Quarter: 2011Q4

REPORT INFORMATION
  Report Type: 
  Country: None (occurrence: None)
  Receive Date: 20111028
  Receipt Date: 20111013
  Transmission Date: 20120403
  Serious: Yes (Other)
  Sender: FDA-Public Use
  Company Number: 2011MA015126

PATIENT
  Age: 41 Year
  Sex: Female

DRUGS (5)
  1. TENOFOVIR DISOPROXIL FUMARATE [Suspect]
     Indication: ACQUIRED IMMUNODEFICIENCY SYNDROME
  2. ATAZANAVIR [Suspect]
     Indication: ACQUIRED IMMUNODEFICIENCY SYNDROME
  3. TRIAMCINOLONE ACETONIDE [Suspect]
     Indication: DERMATITIS
     Dosage: 60 MG;1X;IM
     Route: 030
  4. LAMIVUDINE (EPIVIR HBV) [Suspect]
     Indication: ACQUIRED IMMUNODEFICIENCY SYNDROME
  5. RITONAVIR [Suspect]
     Indication: ACQUIRED IMMUNODEFICIENCY SYNDROME

REACTIONS (6)
  - IATROGENIC INJURY [None]
  - RASH [None]
  - HAIR GROWTH ABNORMAL [None]
  - CUSHING'S SYNDROME [None]
  - WEIGHT INCREASED [None]
  - ADRENAL INSUFFICIENCY [None]
